FAERS Safety Report 21436127 (Version 2)
Quarter: 2022Q4

REPORT INFORMATION
  Report Type: Report from Study
  Country: AU (occurrence: AU)
  Receive Date: 20221010
  Receipt Date: 20221111
  Transmission Date: 20230112
  Serious: No
  Sender: FDA-Public Use
  Company Number: AU-ALNYLAM PHARMACEUTICALS, INC.-ALN-2022-003284

PATIENT

DRUGS (2)
  1. PLACEBO [Suspect]
     Active Substance: UNSPECIFIED INGREDIENT
     Indication: Cardiac amyloidosis
     Dosage: 25 MILLIGRAM, FOR EVERY 3 MONTHS
     Route: 058
     Dates: start: 20220902
  2. PLACEBO [Suspect]
     Active Substance: UNSPECIFIED INGREDIENT
     Dosage: 50 MG/ML VS PLACEBO 0.5 ML (ALN-TTRSCO2-003) HELIOS-B PREFILLED SYRINGE VIA SUBCUTANEOUSLY AT WEEK 6
     Route: 058
     Dates: start: 20220902

REACTIONS (1)
  - No adverse event [Unknown]

NARRATIVE: CASE EVENT DATE: 20220902
